FAERS Safety Report 17949155 (Version 2)
Quarter: 2020Q3

REPORT INFORMATION
  Report Type: Report from Study
  Country: US (occurrence: US)
  Receive Date: 20200626
  Receipt Date: 20200701
  Transmission Date: 20201103
  Serious: Yes (Hospitalization)
  Sender: FDA-Public Use
  Company Number: US-PFIZER INC-2020193337

PATIENT
  Age: 63 Year
  Sex: Male
  Weight: 86.7 kg

DRUGS (5)
  1. IRINOTECAN LIPOSOME INJECTION [Suspect]
     Active Substance: IRINOTECAN
     Indication: ADENOCARCINOMA PANCREAS
     Dosage: 70 MG/M2, DAY 1 (Q14D)
     Route: 042
     Dates: start: 20200330
  2. 5?FU [FLUOROURACIL] [Suspect]
     Active Substance: FLUOROURACIL
     Indication: ADENOCARCINOMA PANCREAS
     Dosage: 2400 MG/M2, DAY 1 OF 14?DAY CYCLE (WEEKLY)
     Dates: start: 20200330
  3. GEMCITABINE [GEMCITABINE HYDROCHLORIDE] [Concomitant]
     Indication: PANCREATIC CARCINOMA
     Dosage: UNK
  4. PARICALCITOL. [Suspect]
     Active Substance: PARICALCITOL
     Indication: ADENOCARCINOMA PANCREAS
     Dosage: 7 UG/KG, WEEKLY
     Route: 042
     Dates: start: 20200330
  5. LEUCOVORIN [FOLINIC ACID] [Suspect]
     Active Substance: LEUCOVORIN
     Indication: ADENOCARCINOMA PANCREAS
     Dosage: 400 MG/M2, DAY 1 OF 14?DAY CYCLE (WEEKLY)
     Dates: start: 20200330

REACTIONS (1)
  - Gastrointestinal haemorrhage [Unknown]

NARRATIVE: CASE EVENT DATE: 20200427
